FAERS Safety Report 5009705-5 (Version None)
Quarter: 2006Q2

REPORT INFORMATION
  Report Type: 
  Country: None (occurrence: None)
  Receive Date: 20060524
  Receipt Date: 20050725
  Transmission Date: 20061013
  Serious: Yes (Hospitalization)
  Sender: FDA-Public Use
  Company Number: AU-MERCK-0507AUS00124

PATIENT
  Age: 54 Year
  Sex: Female

DRUGS (27)
  1. ZETIA [Suspect]
     Indication: HYPERCHOLESTEROLAEMIA
     Route: 048
     Dates: start: 20050101
  2. VENLAFAXINE HYDROCHLORIDE [Concomitant]
     Route: 065
  3. ATENOLOL [Concomitant]
     Indication: HYPERTENSION
     Route: 065
  4. DANAZOL [Concomitant]
     Route: 065
  5. GEMFIBROZIL [Concomitant]
     Route: 065
  6. CALCIUM CARBONATE [Concomitant]
     Indication: RENAL FAILURE CHRONIC
     Route: 065
  7. NIFEDIPINE [Concomitant]
     Indication: HYPERTENSION
     Route: 065
  8. CLOPIDOGREL BISULFATE [Concomitant]
     Indication: ANTIPLATELET THERAPY
     Route: 065
  9. GLICLAZIDE [Concomitant]
     Indication: DIABETES MELLITUS NON-INSULIN-DEPENDENT
     Route: 065
  10. ISOSORBIDE MONONITRATE [Concomitant]
     Indication: MYOCARDIAL ISCHAEMIA
     Route: 065
  11. FUROSEMIDE [Concomitant]
     Indication: RENAL FAILURE CHRONIC
     Route: 065
  12. ESOMEPRAZOLE [Concomitant]
     Indication: GASTROOESOPHAGEAL REFLUX DISEASE
     Route: 065
  13. PROPOFOL [Suspect]
     Indication: ANAESTHESIA
     Route: 065
     Dates: start: 20050711
  14. GLYCOPYRROLATE [Concomitant]
     Indication: CATHETER PLACEMENT
     Route: 065
     Dates: start: 20050711
  15. NEOSTIGMINE BROMIDE [Concomitant]
     Indication: CATHETER PLACEMENT
     Route: 065
     Dates: start: 20050711
  16. METARAMINOL [Concomitant]
     Indication: CATHETER PLACEMENT
     Route: 065
     Dates: start: 20050711
  17. EPHEDRINE [Concomitant]
     Indication: CATHETER PLACEMENT
     Route: 065
     Dates: start: 20050711
  18. ATROPINE [Concomitant]
     Indication: CATHETER PLACEMENT
     Route: 065
     Dates: start: 20050711
  19. CEFAZOLIN SODIUM [Concomitant]
     Indication: CATHETER PLACEMENT
     Route: 065
     Dates: start: 20050711
  20. VECURONIUM BROMIDE [Concomitant]
     Indication: CATHETER PLACEMENT
     Route: 065
     Dates: start: 20050711
  21. BUPIVACAINE HYDROCHLORIDE [Concomitant]
     Indication: CATHETER PLACEMENT
     Route: 065
     Dates: start: 20050711
  22. PROCHLORPERAZINE [Concomitant]
     Route: 065
  23. OXAZEPAM [Concomitant]
     Route: 065
  24. FENTANYL [Suspect]
     Indication: ANALGESIC EFFECT
     Route: 058
     Dates: start: 20050711, end: 20050720
  25. INSULIN, NEUTRAL [Concomitant]
     Route: 065
     Dates: start: 20050710, end: 20050711
  26. [THERAPY UNSPECIFIED] [Concomitant]
     Indication: HEREDITARY ANGIOEDEMA
     Route: 065
     Dates: start: 20050711
  27. TROPISETRON [Concomitant]
     Indication: CATHETER PLACEMENT
     Route: 065
     Dates: start: 20050711

REACTIONS (9)
  - ABDOMINAL PAIN [None]
  - ABDOMINAL PAIN UPPER [None]
  - DEHYDRATION [None]
  - LIPASE INCREASED [None]
  - NAUSEA [None]
  - PANCREATITIS [None]
  - RENAL DISORDER [None]
  - RENAL IMPAIRMENT [None]
  - VOMITING [None]
